FAERS Safety Report 4512409-6 (Version None)
Quarter: 2004Q4

REPORT INFORMATION
  Report Type: 
  Country: None (occurrence: None)
  Receive Date: 20041124
  Receipt Date: 20041116
  Transmission Date: 20050328
  Serious: Yes (Other)
  Sender: FDA-Public Use
  Company Number: 2004093434

PATIENT
  Sex: Male
  Weight: 23.587 kg

DRUGS (1)
  1. CHILDREN'S PEDIACARE MULTI-SYMPTOM COLD (PSEUDOEPHEDRINE, DEXTROMETHOR [Suspect]
     Indication: NASOPHARYNGITIS
     Dosage: ORAL
     Route: 048
     Dates: start: 20000101

REACTIONS (1)
  - CARCINOMA [None]
